FAERS Safety Report 12465431 (Version 2)
Quarter: 2017Q1

REPORT INFORMATION
  Report Type: Spontaneous
  Country: JP (occurrence: JP)
  Receive Date: 20160614
  Receipt Date: 20170208
  Transmission Date: 20170428
  Serious: Yes (Life-Threatening, Hospitalization)
  Sender: FDA-Public Use
  Company Number: JP-GE HEALTHCARE MEDICAL DIAGNOSTICS-OMPQ-PR-1606S-0936

PATIENT
  Age: 67 Year
  Sex: Male
  Weight: 78 kg

DRUGS (8)
  1. OMNIPAQUE [Suspect]
     Active Substance: IOHEXOL
     Indication: DIAGNOSTIC PROCEDURE
  2. LANDEL [Concomitant]
     Active Substance: UNSPECIFIED INGREDIENT
  3. OMNIPAQUE [Suspect]
     Active Substance: IOHEXOL
     Indication: RECTAL CANCER
     Route: 042
     Dates: start: 20160530, end: 20160530
  4. MARUYAMA VACCINE [Concomitant]
     Dates: start: 201603
  5. LONSURF [Concomitant]
     Active Substance: TIPIRACIL HYDROCHLORIDE\TRIFLURIDINE
     Dates: start: 201604
  6. GLIMEPIRIDE. [Concomitant]
     Active Substance: GLIMEPIRIDE
  7. SUINY [Concomitant]
     Active Substance: ANAGLIPTIN
  8. AZILVA [Concomitant]
     Active Substance: AZILSARTAN KAMEDOXOMIL

REACTIONS (4)
  - Respiratory arrest [Recovered/Resolved]
  - Anaphylactic shock [Recovered/Resolved]
  - Laryngeal oedema [Recovered/Resolved]
  - Cardiac arrest [Recovered/Resolved]

NARRATIVE: CASE EVENT DATE: 20160530
